FAERS Safety Report 5776444-2 (Version None)
Quarter: 2008Q2

REPORT INFORMATION
  Report Type: 
  Country: None (occurrence: None)
  Receive Date: 20080617
  Receipt Date: 20080617
  Transmission Date: 20081010
  Serious: No
  Sender: FDA-Public Use
  Company Number: None

PATIENT
  Age: 81 Year
  Sex: Male
  Weight: 99.7913 kg

DRUGS (1)
  1. DIGITEK 0.125MG ACTAVIS TOTOWA LLC [Suspect]
     Dosage: 0.125MG 1X'S A DAY
     Dates: start: 20080401, end: 20080501

REACTIONS (2)
  - PHARMACEUTICAL PRODUCT COMPLAINT [None]
  - VISION BLURRED [None]
